FAERS Safety Report 14025634 (Version 1)
Quarter: 2017Q3

REPORT INFORMATION
  Report Type: Spontaneous
  Country: US (occurrence: US)
  Receive Date: 20170929
  Receipt Date: 20170929
  Transmission Date: 20171128
  Serious: No
  Sender: FDA-Public Use
  Company Number: US-BION-006560

PATIENT
  Age: 73 Year
  Sex: Male
  Weight: 56.25 kg

DRUGS (1)
  1. ANTI-DIARRHEAL LOPERAMIDE HCL [Suspect]
     Active Substance: LOPERAMIDE HYDROCHLORIDE
     Indication: ANTIDIARRHOEAL SUPPORTIVE CARE
     Dosage: 1-2 SOFTGELS
     Route: 048

REACTIONS (5)
  - Poor quality drug administered [Not Recovered/Not Resolved]
  - Product physical consistency issue [Unknown]
  - Throat irritation [Recovered/Resolved]
  - Foreign body in respiratory tract [Unknown]
  - Wrong technique in product usage process [Not Recovered/Not Resolved]

NARRATIVE: CASE EVENT DATE: 20170731
